FAERS Safety Report 9383541 (Version 3)
Quarter: 2013Q4

REPORT INFORMATION
  Report Type: Spontaneous
  Country: US (occurrence: US)
  Receive Date: 20130704
  Receipt Date: 20131112
  Transmission Date: 20140711
  Serious: No
  Sender: FDA-Public Use
  Company Number: US-PFIZER INC-2013196180

PATIENT
  Age: 59 Year
  Sex: Male

DRUGS (10)
  1. SUTENT [Suspect]
     Indication: RENAL CANCER
     Dosage: 50 MG, CYCLIC (QD 4 WKS, OFF 2 WKS)
     Route: 048
     Dates: start: 20130302
  2. SUTENT [Suspect]
     Dosage: 50 MG, CYCLIC (QD 4 WKS, OFF 2 WKS)
     Route: 048
     Dates: start: 20130306
  3. OXYCODONE [Concomitant]
     Dosage: UNK
  4. SENNA [Concomitant]
     Dosage: UNK
  5. ATENOLOL [Concomitant]
     Dosage: UNK
  6. LEVOTHROID [Concomitant]
     Dosage: UNK
  7. CALCIUM [Concomitant]
     Dosage: UNK
  8. VITAMIN D [Concomitant]
     Dosage: UNK
  9. FENOFIBRATE [Concomitant]
     Dosage: UNK
  10. CEFUROXIME [Concomitant]
     Dosage: UNK

REACTIONS (1)
  - Fatigue [Not Recovered/Not Resolved]
